FAERS Safety Report 18873577 (Version 1)
Quarter: 2021Q1

REPORT INFORMATION
  Report Type: Spontaneous
  Country: FI (occurrence: FI)
  Receive Date: 20210210
  Receipt Date: 20210210
  Transmission Date: 20210420
  Serious: Yes (Disabling)
  Sender: FDA-Public Use
  Company Number: FI-ROCHE-2764598

PATIENT
  Age: 33 Year
  Sex: Male

DRUGS (4)
  1. PERATSIN [Concomitant]
     Active Substance: PERPHENAZINE
     Indication: MENTAL DISORDER
     Route: 065
  2. LYRICA [Suspect]
     Active Substance: PREGABALIN
     Indication: MENTAL DISORDER
     Route: 065
  3. CITALOPRAM [Concomitant]
     Active Substance: CITALOPRAM HYDROBROMIDE
     Indication: MENTAL DISORDER
     Route: 065
  4. RIVATRIL [Suspect]
     Active Substance: CLONAZEPAM
     Indication: MENTAL DISORDER
     Route: 048
     Dates: start: 20100429, end: 20190501

REACTIONS (38)
  - Impaired driving ability [Recovering/Resolving]
  - Akathisia [Recovering/Resolving]
  - Blister [Recovering/Resolving]
  - Musculoskeletal chest pain [Recovering/Resolving]
  - Genital discomfort [Recovering/Resolving]
  - Tremor [Recovering/Resolving]
  - Hypotonia [Recovering/Resolving]
  - Withdrawal syndrome [Recovering/Resolving]
  - Fear [Recovering/Resolving]
  - Areflexia [Recovering/Resolving]
  - Anxiety [Recovering/Resolving]
  - Confusional state [Recovering/Resolving]
  - Sensory disturbance [Recovering/Resolving]
  - Mental impairment [Recovering/Resolving]
  - Gait disturbance [Recovering/Resolving]
  - Oral pain [Recovering/Resolving]
  - Somnolence [Recovering/Resolving]
  - Drug dependence [Recovering/Resolving]
  - Coordination abnormal [Recovering/Resolving]
  - Sleep disorder [Recovering/Resolving]
  - Abnormal dreams [Recovering/Resolving]
  - Dysphagia [Recovering/Resolving]
  - Aggression [Recovering/Resolving]
  - Agitation [Recovering/Resolving]
  - Nightmare [Recovering/Resolving]
  - Gambling disorder [Recovering/Resolving]
  - Libido decreased [Recovering/Resolving]
  - Restlessness [Recovering/Resolving]
  - Hostility [Recovering/Resolving]
  - Muscle twitching [Recovering/Resolving]
  - Memory impairment [Recovering/Resolving]
  - Fatigue [Recovering/Resolving]
  - Hyperhidrosis [Recovering/Resolving]
  - Irritability [Recovering/Resolving]
  - Depression [Recovering/Resolving]
  - Nervousness [Recovering/Resolving]
  - Disturbance in attention [Recovering/Resolving]
  - Muscular weakness [Recovering/Resolving]
